FAERS Safety Report 16858487 (Version 1)
Quarter: 2019Q3

REPORT INFORMATION
  Report Type: Spontaneous
  Country: FR (occurrence: FR)
  Receive Date: 20190926
  Receipt Date: 20190926
  Transmission Date: 20191005
  Serious: Yes (Hospitalization)
  Sender: FDA-Public Use
  Company Number: FR-PFM-2019-11611

PATIENT

DRUGS (6)
  1. GENTAMICINE PANPHARMA [Suspect]
     Active Substance: GENTAMICIN
     Indication: LUNG DISORDER
     Dosage: 460 MG, DAY
     Route: 042
     Dates: start: 20190722, end: 20190724
  2. OPDIVO [Suspect]
     Active Substance: NIVOLUMAB
     Indication: SQUAMOUS CELL CARCINOMA
     Dosage: 240 MG, DAY
     Route: 042
     Dates: start: 20180725, end: 20190603
  3. CIFLOX [Suspect]
     Active Substance: CIPROFLOXACIN
     Indication: LUNG DISORDER
     Dosage: 800 MG, DAY
     Route: 042
     Dates: start: 20190722, end: 20190724
  4. CARBOPLATINE ACCORD [Suspect]
     Active Substance: CARBOPLATIN
     Indication: SQUAMOUS CELL CARCINOMA
     Dosage: 445 MG, DAY
     Route: 042
     Dates: start: 20190710, end: 20190710
  5. NAVELBINE [Suspect]
     Active Substance: VINORELBINE TARTRATE
     Indication: SQUAMOUS CELL CARCINOMA
     Dosage: 94 MG, UNK
     Route: 042
     Dates: start: 20190710
  6. AUGMENTIN [Suspect]
     Active Substance: AMOXICILLIN\CLAVULANATE POTASSIUM
     Indication: LUNG DISORDER
     Dosage: 3 DF, DAY
     Route: 042
     Dates: start: 20190722, end: 20190724

REACTIONS (1)
  - Acute kidney injury [Recovering/Resolving]

NARRATIVE: CASE EVENT DATE: 20190722
